FAERS Safety Report 12457132 (Version 2)
Quarter: 2016Q2

REPORT INFORMATION
  Report Type: Report from Study
  Country: US (occurrence: US)
  Receive Date: 20160610
  Receipt Date: 20160629
  Transmission Date: 20160815
  Serious: Yes (Hospitalization, Other)
  Sender: FDA-Public Use
  Company Number: US-GILEAD-2016-0218083

PATIENT
  Age: 45 Year
  Sex: Female

DRUGS (12)
  1. AMBRISENTAN [Suspect]
     Active Substance: AMBRISENTAN
     Indication: PULMONARY HYPERTENSION
     Dosage: 10 MG, QD
     Route: 065
     Dates: start: 20091127
  2. LEVOTHYROXINE. [Concomitant]
     Active Substance: LEVOTHYROXINE
  3. COMPAZINE [Concomitant]
     Active Substance: PROCHLORPERAZINE MALEATE
  4. DIFLUCAN [Concomitant]
     Active Substance: FLUCONAZOLE
  5. ALDACTONE [Concomitant]
     Active Substance: SPIRONOLACTONE
  6. ATIVAN [Concomitant]
     Active Substance: LORAZEPAM
  7. LEVOFLOXACIN. [Concomitant]
     Active Substance: LEVOFLOXACIN
  8. POTASSIUM [Concomitant]
     Active Substance: POTASSIUM
  9. ACYCLOVIR                          /00587301/ [Concomitant]
     Active Substance: ACYCLOVIR
  10. SILDENAFIL. [Concomitant]
     Active Substance: SILDENAFIL
  11. FUROSEMIDE. [Concomitant]
     Active Substance: FUROSEMIDE
  12. MORPHINE [Concomitant]
     Active Substance: MORPHINE

REACTIONS (4)
  - Lymphoma [Unknown]
  - Febrile neutropenia [Unknown]
  - Drug dose omission [Unknown]
  - Dyspnoea [Unknown]
